FAERS Safety Report 4704750-9 (Version None)
Quarter: 2005Q2

REPORT INFORMATION
  Report Type: 
  Country: None (occurrence: None)
  Receive Date: 20050630
  Receipt Date: 20050614
  Transmission Date: 20051028
  Serious: Yes (Other)
  Sender: FDA-Public Use
  Company Number: US-2005-011018

PATIENT
  Age: 68 Year
  Sex: Male

DRUGS (9)
  1. FLUDARA [Suspect]
     Indication: NON-HODGKIN'S LYMPHOMA UNSPECIFIED HISTOLOGY INDOLENT STAGE IV
     Dosage: 25 MG/M2, D1-3, INTRAVENOUS
     Route: 042
  2. MITOXANTRONE [Suspect]
     Indication: NON-HODGKIN'S LYMPHOMA UNSPECIFIED HISTOLOGY INDOLENT STAGE IV
     Dosage: 10 MG/M2, D1, INTRAVENOUS
     Route: 042
  3. DEXAMETHASONE [Suspect]
     Indication: NON-HODGKIN'S LYMPHOMA UNSPECIFIED HISTOLOGY INDOLENT STAGE IV
     Dosage: SEE IMAGE, ORAL
     Route: 048
  4. RITUXIMAB (RITUXIMAB) [Suspect]
     Indication: NON-HODGKIN'S LYMPHOMA UNSPECIFIED HISTOLOGY INDOLENT STAGE IV
     Dosage: SEE IMAGE, INTRAVENOUS
     Route: 042
  5. INTERFERON ALFA-2B (INTEFERON ALFA-2B) [Suspect]
     Indication: NON-HODGKIN'S LYMPHOMA UNSPECIFIED HISTOLOGY INDOLENT STAGE IV
     Dosage: 3 MIU/M2, 1X/DAY D2 TO D14, SUBCUTANEOUS
     Route: 058
  6. DOXORUBICIN (DOXORUBICIN) [Suspect]
     Indication: NON-HODGKIN'S LYMPHOMA UNSPECIFIED HISTOLOGY INDOLENT STAGE IV
     Dosage: SALVAGE THERAPY, INTRAVENOUS
     Route: 042
  7. CYCLOPHOSPHAMIDE [Suspect]
     Indication: NON-HODGKIN'S LYMPHOMA UNSPECIFIED HISTOLOGY INDOLENT STAGE IV
     Dosage: SALVAGE THERAPY, INTRAVENOUS
     Route: 042
  8. VINCRISTINE [Suspect]
     Indication: NON-HODGKIN'S LYMPHOMA UNSPECIFIED HISTOLOGY INDOLENT STAGE IV
     Dosage: SALVAGE THERAPY, INTRAVENOUS
     Route: 042
  9. PREDNISONE [Suspect]
     Indication: NON-HODGKIN'S LYMPHOMA UNSPECIFIED HISTOLOGY INDOLENT STAGE IV
     Dosage: SALVAGE THERAPY, INTRAVENOUS
     Route: 042

REACTIONS (1)
  - ACUTE MYELOMONOCYTIC LEUKAEMIA [None]
